FAERS Safety Report 8197268-5 (Version None)
Quarter: 2012Q1

REPORT INFORMATION
  Report Type: 
  Country: None (occurrence: None)
  Receive Date: 20120309
  Receipt Date: 20120228
  Transmission Date: 20120608
  Serious: Yes (Death, Hospitalization, Other)
  Sender: FDA-Public Use
  Company Number: US-PFIZER INC-2012062269

PATIENT
  Sex: Male
  Weight: 100 kg

DRUGS (11)
  1. DEXAMETHASONE SODIUM PHOSPHATE [Suspect]
     Indication: PROPHYLAXIS OF NAUSEA AND VOMITING
  2. ETOPOSIDE [Suspect]
     Indication: SEMINOMA
     Dosage: 230 MG ONCE DAILY D 1-5 X 4 CYCLES
     Dates: start: 20110131, end: 20110408
  3. CISPLATIN [Suspect]
     Indication: SEMINOMA
     Dosage: 45 MG D 1-5 X 3 CYCLES; 35 MG ON CYCLE 4
     Dates: start: 20110131, end: 20110408
  4. DEXAMETHASONE SODIUM PHOSPHATE [Suspect]
     Indication: VOMITING
  5. DEXAMETHASONE [Suspect]
     Indication: VOMITING
     Dosage: 4 TABLETS (2 TABLETS TWICE DAILY)
     Route: 048
     Dates: start: 20110321, end: 20110325
  6. SODIUM CHLORIDE [Suspect]
     Dosage: 100 TO 250 ML
     Dates: start: 20110131, end: 20110408
  7. ALOXI [Concomitant]
     Dosage: D 5 X 4 CYCLES
     Dates: start: 20110204, end: 20110408
  8. MANNITOL [Concomitant]
     Dosage: UNK
     Dates: start: 20110131, end: 20110408
  9. EMEND [Concomitant]
     Dosage: D 1 X 4 CYCLES (150 MG)
     Dates: start: 20110131, end: 20110404
  10. DEXAMETHASONE SODIUM PHOSPHATE [Suspect]
     Indication: NAUSEA
     Dosage: 10 MG D 1-5 X 3 CYCLES
     Route: 042
     Dates: start: 20110131, end: 20110406
  11. ZOFRAN [Concomitant]
     Dosage: D 1-5 X 4 CYCLES
     Dates: start: 20110131, end: 20110408

REACTIONS (16)
  - LACTIC ACIDOSIS [None]
  - HEPATOMEGALY [None]
  - PULMONARY EMBOLISM [None]
  - DEHYDRATION [None]
  - PULMONARY OEDEMA [None]
  - ANAEMIA [None]
  - DEEP VEIN THROMBOSIS [None]
  - ABDOMINAL PAIN [None]
  - CARDIO-RESPIRATORY ARREST [None]
  - HYPERTENSIVE HEART DISEASE [None]
  - PAIN IN EXTREMITY [None]
  - MENTAL STATUS CHANGES [None]
  - TINNITUS [None]
  - NEUTROPENIA [None]
  - TINEA PEDIS [None]
  - HYPERGLYCAEMIA [None]
